FAERS Safety Report 8330198-4 (Version None)
Quarter: 2012Q2

REPORT INFORMATION
  Report Type: 
  Country: None (occurrence: None)
  Receive Date: 20120502
  Receipt Date: 20120417
  Transmission Date: 20120825
  Serious: Yes (Other)
  Sender: FDA-Public Use
  Company Number: CHPA2012CA009545

PATIENT
  Age: 43 Year
  Sex: Female

DRUGS (1)
  1. NUPERCAINAL [Suspect]
     Indication: ANAL ULCER
     Dosage: UNK, UNK
     Route: 054
     Dates: start: 20060101

REACTIONS (8)
  - SINUSITIS [None]
  - OVERDOSE [None]
  - RHINORRHOEA [None]
  - BACK PAIN [None]
  - THERAPEUTIC RESPONSE UNEXPECTED [None]
  - COMPRESSION FRACTURE [None]
  - INCORRECT ROUTE OF DRUG ADMINISTRATION [None]
  - INCORRECT DRUG ADMINISTRATION DURATION [None]
